FAERS Safety Report 6500440-0 (Version None)
Quarter: 2009Q4

REPORT INFORMATION
  Report Type: 
  Country: None (occurrence: None)
  Receive Date: 20091216
  Receipt Date: 20091207
  Transmission Date: 20100525
  Serious: Yes (Other)
  Sender: FDA-Public Use
  Company Number: DE-ROCHE-674526

PATIENT
  Sex: Female

DRUGS (2)
  1. AVASTIN [Suspect]
     Indication: BREAST CANCER
     Dosage: GIVEN 4 TIMES IN COMBINATION WITH PACLTAXEL FOLLOWED BY MONOTHERAPY
     Route: 065
  2. TAXOL [Concomitant]
     Indication: BREAST CANCER
     Dosage: GIVEN IN COMBINATION WITH BEVACIZUMAB 4 TIMES

REACTIONS (3)
  - APHASIA [None]
  - DEAFNESS BILATERAL [None]
  - METASTASES TO CENTRAL NERVOUS SYSTEM [None]
